FAERS Safety Report 10043088 (Version 1)
Quarter: 2014Q1

REPORT INFORMATION
  Report Type: Spontaneous
  Country: US (occurrence: US)
  Receive Date: 20140328
  Receipt Date: 20140328
  Transmission Date: 20141002
  Serious: No
  Sender: FDA-Public Use
  Company Number: US-BIOGENIDEC-2014BI027729

PATIENT
  Sex: Male

DRUGS (1)
  1. AVONEX [Suspect]
     Indication: MULTIPLE SCLEROSIS
     Route: 030
     Dates: start: 20131118, end: 201402

REACTIONS (3)
  - Mobility decreased [Not Recovered/Not Resolved]
  - Agraphia [Not Recovered/Not Resolved]
  - Loss of control of legs [Recovered/Resolved]
